FAERS Safety Report 5019538-1 (Version None)
Quarter: 2006Q2

REPORT INFORMATION
  Report Type: 
  Country: None (occurrence: None)
  Receive Date: 20060601
  Receipt Date: 20060517
  Transmission Date: 20061013
  Serious: Yes (Other)
  Sender: FDA-Public Use
  Company Number: SUS1-2006-00508

PATIENT
  Age: 16 Year
  Sex: Male
  Weight: 81.6 kg

DRUGS (1)
  1. ADDERALL XR 30 [Suspect]
     Indication: ATTENTION DEFICIT/HYPERACTIVITY DISORDER
     Dosage: 40 MG, 1X/DAY;QD
     Dates: start: 20041101, end: 20060401

REACTIONS (11)
  - DYSURIA [None]
  - GENITAL PAIN MALE [None]
  - HAEMATURIA [None]
  - PENILE PAIN [None]
  - PRESCRIBED OVERDOSE [None]
  - SHOCK [None]
  - TREMOR [None]
  - URETHRAL DISORDER [None]
  - URETHRAL PAIN [None]
  - URETHRAL STENOSIS [None]
  - URINARY RETENTION [None]
